FAERS Safety Report 13896308 (Version 1)
Quarter: 2017Q3

REPORT INFORMATION
  Report Type: Report from Study
  Country: US (occurrence: US)
  Receive Date: 20170823
  Receipt Date: 20170823
  Transmission Date: 20171127
  Serious: Yes (Other)
  Sender: FDA-Public Use
  Company Number: PHEH2016US034404

PATIENT

DRUGS (1)
  1. ILEVRO [Suspect]
     Active Substance: NEPAFENAC
     Indication: PROCEDURAL PAIN
     Route: 065

REACTIONS (7)
  - Drug intolerance [Unknown]
  - Drug ineffective [Unknown]
  - Eye pain [Unknown]
  - Product physical consistency issue [Unknown]
  - Therapy partial responder [Unknown]
  - Eye irritation [Unknown]
  - Punctate keratitis [Unknown]
